FAERS Safety Report 17398188 (Version 1)
Quarter: 2020Q1

REPORT INFORMATION
  Report Type: Spontaneous
  Country: DE (occurrence: DE)
  Receive Date: 20200210
  Receipt Date: 20200210
  Transmission Date: 20200409
  Serious: Yes (Other)
  Sender: FDA-Public Use
  Company Number: DE-MYLANLABS-2020M1014549

PATIENT
  Sex: Female

DRUGS (1)
  1. AZATHIOPRIN DURA N 50 MG FILMTABLETTEN [Suspect]
     Active Substance: AZATHIOPRINE
     Indication: ALVEOLITIS
     Dosage: 150 MILLIGRAM, QD

REACTIONS (2)
  - Back pain [Unknown]
  - Lung neoplasm malignant [Unknown]
